FAERS Safety Report 8538440-1 (Version None)
Quarter: 2012Q3

REPORT INFORMATION
  Report Type: 
  Country: None (occurrence: None)
  Receive Date: 20120712
  Receipt Date: 20120629
  Transmission Date: 20120928
  Serious: Yes (Hospitalization)
  Sender: FDA-Public Use
  Company Number: 218017

PATIENT
  Age: 70 Year
  Sex: Female

DRUGS (1)
  1. DAIVOBET GEL (DAIVOBET /01643401/) [Suspect]
     Indication: PSORIASIS
     Dosage: MORE THAN RECOMMENDED
     Dates: start: 20120501

REACTIONS (3)
  - HAEMATOMA [None]
  - SKIN ATROPHY [None]
  - INCORRECT DOSE ADMINISTERED [None]
